FAERS Safety Report 18914741 (Version 2)
Quarter: 2021Q2

REPORT INFORMATION
  Report Type: Spontaneous
  Country: US (occurrence: US)
  Receive Date: 20210219
  Receipt Date: 20210414
  Transmission Date: 20210717
  Serious: Yes (Other)
  Sender: FDA-Public Use
  Company Number: NVSC2021US031211

PATIENT
  Sex: Female

DRUGS (1)
  1. COSENTYX [Suspect]
     Active Substance: SECUKINUMAB
     Indication: PRODUCT USED FOR UNKNOWN INDICATION
     Dosage: 150 MG (ONCE EVERY 28 DAYS)
     Route: 058

REACTIONS (6)
  - Device leakage [Unknown]
  - Diabetes mellitus [Unknown]
  - Pruritus [Unknown]
  - Incorrect dose administered [Unknown]
  - Device defective [Unknown]
  - Hypertension [Unknown]
